FAERS Safety Report 6041793-X (Version None)
Quarter: 2009Q1

REPORT INFORMATION
  Report Type: 
  Country: None (occurrence: None)
  Receive Date: 20090116
  Receipt Date: 20090109
  Transmission Date: 20090719
  Serious: Yes (Hospitalization)
  Sender: FDA-Public Use
  Company Number: JP-AVENTIS-200820519GDDC

PATIENT
  Age: 53 Year
  Sex: Male

DRUGS (6)
  1. RIFADIN [Suspect]
     Indication: PULMONARY TUBERCULOSIS
     Route: 048
     Dates: start: 20060701, end: 20070425
  2. INH /00030201/ [Concomitant]
     Dates: start: 20060701, end: 20070425
  3. ETHAMBUTOL [Concomitant]
     Dates: start: 20060701, end: 20070425
  4. PYDOXAL [Concomitant]
     Dosage: DOSE: 1 DF
     Route: 048
     Dates: start: 20060701, end: 20070425
  5. GLYCYRON                           /00466401/ [Concomitant]
     Dosage: DOSE: 3 DF
     Route: 048
     Dates: start: 20060701, end: 20070425
  6. LASIX [Concomitant]
     Route: 048
     Dates: start: 20060701

REACTIONS (2)
  - GLOMERULONEPHRITIS RAPIDLY PROGRESSIVE [None]
  - NEPHROTIC SYNDROME [None]
